FAERS Safety Report 8802727 (Version 3)
Quarter: 2013Q1

REPORT INFORMATION
  Report Type: Spontaneous
  Country: US (occurrence: US)
  Receive Date: 20120921
  Receipt Date: 20130214
  Transmission Date: 20140127
  Serious: Yes (Other)
  Sender: FDA-Public Use
  Company Number: US-009507513-1203USA02830

PATIENT
  Sex: Female
  Weight: 58.5 kg

DRUGS (3)
  1. FOSAMAX [Suspect]
     Indication: OSTEOPENIA
     Dosage: 70 MG, UNK
     Route: 048
     Dates: start: 200302, end: 200509
  2. BONIVA [Suspect]
     Indication: OSTEOPENIA
     Dosage: 150 MG, UNK
     Route: 048
     Dates: start: 200510, end: 200802
  3. XALATAN [Concomitant]
     Indication: GLAUCOMA
     Dosage: UNK
     Dates: start: 1995

REACTIONS (58)
  - Jaw operation [Unknown]
  - Jaw operation [Unknown]
  - Cataract operation [Unknown]
  - Stapes mobilisation [Unknown]
  - Cataract operation [Unknown]
  - Osteonecrosis of jaw [Unknown]
  - Tooth abscess [Unknown]
  - Tooth extraction [Unknown]
  - Tooth fracture [Unknown]
  - Dental caries [Unknown]
  - Dental caries [Unknown]
  - Tooth infection [Unknown]
  - Tooth extraction [Unknown]
  - Tooth extraction [Unknown]
  - Tooth infection [Unknown]
  - Oral infection [Unknown]
  - Impaired healing [Unknown]
  - Exposed bone in jaw [Unknown]
  - Oral cavity fistula [Unknown]
  - Debridement [Unknown]
  - Biopsy bone [Unknown]
  - Biopsy bone [Unknown]
  - Dental prosthesis placement [Unknown]
  - Dental prosthesis placement [Unknown]
  - Adverse event [Unknown]
  - Facial bones fracture [Unknown]
  - Fall [Unknown]
  - Lip injury [Unknown]
  - Face injury [Unknown]
  - Oral disorder [Unknown]
  - Ovarian failure [Unknown]
  - Dental prosthesis placement [Unknown]
  - Cyst [Unknown]
  - Tooth abscess [Unknown]
  - Infection [Not Recovered/Not Resolved]
  - Tooth disorder [Unknown]
  - Oral cavity fistula [Unknown]
  - Cyst [Unknown]
  - Fibrous dysplasia of bone [Unknown]
  - Nasal septum deviation [Unknown]
  - Decreased appetite [Unknown]
  - Ataxia [Unknown]
  - Kyphoscoliosis [Unknown]
  - Intervertebral disc degeneration [Unknown]
  - Tuberculosis [Unknown]
  - Pneumothorax [Unknown]
  - Therapeutic procedure [Unknown]
  - Exostosis of jaw [Unknown]
  - Tooth fracture [Unknown]
  - Osteomyelitis [Unknown]
  - Musculoskeletal pain [Unknown]
  - Asthenia [Unknown]
  - Nausea [Unknown]
  - Dizziness [Unknown]
  - Vomiting [Unknown]
  - Gingival infection [Unknown]
  - Exostosis of jaw [Unknown]
  - Oral disorder [Unknown]
